FAERS Safety Report 13570172 (Version 2)
Quarter: 2017Q3

REPORT INFORMATION
  Report Type: Report from Study
  Country: US (occurrence: US)
  Receive Date: 20170522
  Receipt Date: 20170906
  Transmission Date: 20171127
  Serious: Yes (Death, Hospitalization)
  Sender: FDA-Public Use
  Company Number: US-VIFOR (INTERNATIONAL) INC.-VIT-2017-05438

PATIENT
  Age: 34 Year
  Sex: Male

DRUGS (13)
  1. CELLCEPT [Concomitant]
     Active Substance: MYCOPHENOLATE MOFETIL\MYCOPHENOLATE MOFETIL HYDROCHLORIDE
  2. REGLAN [Concomitant]
     Active Substance: METOCLOPRAMIDE HYDROCHLORIDE
  3. TRAZODONE [Concomitant]
     Active Substance: TRAZODONE HYDROCHLORIDE
  4. ROBAXIN [Concomitant]
     Active Substance: METHOCARBAMOL
  5. ZOFRAN [Concomitant]
     Active Substance: ONDANSETRON HYDROCHLORIDE
  6. HUMALIN N [Concomitant]
  7. VALGANCICLOVIR. [Concomitant]
     Active Substance: VALGANCICLOVIR
  8. PROTONIX [Concomitant]
     Active Substance: PANTOPRAZOLE SODIUM
  9. TACROLIMUS. [Concomitant]
     Active Substance: TACROLIMUS
  10. VELTASSA [Suspect]
     Active Substance: PATIROMER
     Indication: HYPERKALAEMIA
     Route: 048
     Dates: start: 20170531
  11. LOPRESSOR [Concomitant]
     Active Substance: METOPROLOL TARTRATE
  12. TOBRAMYCIN. [Concomitant]
     Active Substance: TOBRAMYCIN
  13. PREDNISONE. [Concomitant]
     Active Substance: PREDNISONE

REACTIONS (2)
  - Hospitalisation [Unknown]
  - Complications of transplant surgery [Fatal]

NARRATIVE: CASE EVENT DATE: 2017
